FAERS Safety Report 25376380 (Version 3)
Quarter: 2025Q2

REPORT INFORMATION
  Report Type: Spontaneous
  Country: GB (occurrence: GB)
  Receive Date: 20250529
  Receipt Date: 20250607
  Transmission Date: 20250717
  Serious: Yes (Hospitalization)
  Sender: TEVA
  Company Number: GB-002147023-NVSC2024GB248446

PATIENT
  Age: 33 Year
  Sex: Female

DRUGS (3)
  1. CYCLOSPORINE [Suspect]
     Active Substance: CYCLOSPORINE
     Indication: Product used for unknown indication
     Route: 065
  2. XOLAIR [Suspect]
     Active Substance: OMALIZUMAB
     Indication: Hereditary alpha tryptasaemia
     Route: 065
     Dates: end: 20241125
  3. XOLAIR [Suspect]
     Active Substance: OMALIZUMAB
     Indication: Hereditary alpha tryptasaemia
     Route: 065

REACTIONS (4)
  - Angioedema [Unknown]
  - Drug resistance [Unknown]
  - Tongue oedema [Unknown]
  - Drug ineffective [Unknown]
